FAERS Safety Report 6044096-2 (Version None)
Quarter: 2009Q1

REPORT INFORMATION
  Report Type: 
  Country: None (occurrence: None)
  Receive Date: 20090120
  Receipt Date: 20090112
  Transmission Date: 20090719
  Serious: Yes (Other)
  Sender: FDA-Public Use
  Company Number: B0554724A

PATIENT
  Age: 30 Year
  Sex: Female

DRUGS (5)
  1. ALBUTEROL [Suspect]
     Indication: ASTHMA
     Route: 045
  2. MORPHINE [Suspect]
     Indication: SEDATION
  3. TERBUTALINE SULFATE [Suspect]
     Route: 058
  4. PROPOFOL [Suspect]
     Indication: SEDATION
  5. LORAZEPAM [Suspect]
     Indication: SEDATION

REACTIONS (5)
  - ABORTION INDUCED [None]
  - CATHETER RELATED INFECTION [None]
  - DRUG EXPOSURE DURING PREGNANCY [None]
  - PNEUMONIA [None]
  - POLYNEUROPATHY [None]
